FAERS Safety Report 9076091 (Version 1)
Quarter: 2013Q1

REPORT INFORMATION
  Report Type: Spontaneous
  Country: US (occurrence: US)
  Receive Date: 20130129
  Receipt Date: 20130129
  Transmission Date: 20140127
  Serious: Yes (Death)
  Sender: FDA-Public Use
  Company Number: CHPA2013US001788

PATIENT
  Sex: Male

DRUGS (1)
  1. KERI UNKNOWN [Suspect]
     Indication: THERAPEUTIC SKIN CARE TOPICAL
     Dosage: UNK, UNK
     Route: 061
     Dates: start: 1972

REACTIONS (1)
  - Death [Fatal]
